FAERS Safety Report 5801252-3 (Version None)
Quarter: 2008Q3

REPORT INFORMATION
  Report Type: 
  Country: None (occurrence: None)
  Receive Date: 20080707
  Receipt Date: 20080625
  Transmission Date: 20090109
  Serious: Yes (Hospitalization)
  Sender: FDA-Public Use
  Company Number: IT-JNJFOC-20070304194

PATIENT
  Sex: Male

DRUGS (6)
  1. TAVANIC [Suspect]
     Indication: PNEUMONIA
     Route: 048
  2. TACHIPIRINA [Concomitant]
     Indication: PYREXIA
     Route: 048
  3. FAXIPARINA [Concomitant]
     Route: 058
  4. ASPIRIN [Concomitant]
     Route: 048
  5. TRAMADOL HCL [Concomitant]
     Route: 065
  6. ACETAMINOPHEN [Concomitant]
     Route: 065

REACTIONS (1)
  - TENDON DISORDER [None]
